FAERS Safety Report 20770123 (Version 2)
Quarter: 2022Q2

REPORT INFORMATION
  Report Type: Report from Study
  Country: AU (occurrence: AU)
  Receive Date: 20220429
  Receipt Date: 20220504
  Transmission Date: 20220721
  Serious: Yes (Other)
  Sender: FDA-Public Use
  Company Number: AU-JNJFOC-20220442520

PATIENT
  Age: 66 Year
  Sex: Male

DRUGS (5)
  1. IMBRUVICA [Suspect]
     Active Substance: IBRUTINIB
     Indication: Mantle cell lymphoma
     Route: 048
     Dates: start: 20170201
  2. PANTOPRAZOLE [Concomitant]
     Active Substance: PANTOPRAZOLE
     Indication: Abdominal pain upper
     Route: 048
  3. PANTOPRAZOLE [Concomitant]
     Active Substance: PANTOPRAZOLE
     Route: 048
  4. MOLNUPIRAVIR [Concomitant]
     Active Substance: MOLNUPIRAVIR
     Indication: COVID-19
     Route: 048
  5. CLARITHROMYCIN [Concomitant]
     Active Substance: CLARITHROMYCIN
     Indication: Helicobacter infection

REACTIONS (5)
  - Muscle haemorrhage [Recovered/Resolved]
  - Helicobacter infection [Recovered/Resolved]
  - Chest pain [Recovering/Resolving]
  - COVID-19 [Recovered/Resolved]
  - Ankle fracture [Unknown]

NARRATIVE: CASE EVENT DATE: 20200420
